FAERS Safety Report 11607787 (Version 7)
Quarter: 2020Q3

REPORT INFORMATION
  Report Type: Report from Study
  Country: RU (occurrence: RU)
  Receive Date: 20151007
  Receipt Date: 20170111
  Transmission Date: 20201105
  Serious: Yes (Life-Threatening, Hospitalization)
  Sender: FDA-Public Use
  Company Number: RU-JNJFOC-20150712051

PATIENT
  Age: 56 Year
  Sex: Male
  Weight: 89.7 kg

DRUGS (8)
  1. CHLOROPYRAMINE [Concomitant]
     Active Substance: CHLOROPYRAMINE
     Indication: PREMEDICATION
     Dosage: PREMEDICATION FOR TEMSIROLIMUS
     Route: 042
  2. MOXIFLOXACINUM [Concomitant]
     Indication: PNEUMONIA
     Route: 048
     Dates: start: 20150529, end: 20150605
  3. AVELOX [Concomitant]
     Active Substance: MOXIFLOXACIN HYDROCHLORIDE
     Indication: LUNG INFILTRATION
     Route: 048
     Dates: start: 20150819, end: 20150823
  4. IBRUTINIB [Suspect]
     Active Substance: IBRUTINIB
     Indication: MANTLE CELL LYMPHOMA
     Route: 048
  5. MANINIL [Concomitant]
     Indication: DIABETES MELLITUS
     Route: 048
     Dates: start: 20140221
  6. ASPARCAM [Concomitant]
     Indication: HYPOKALAEMIA
     Route: 048
     Dates: start: 20150312, end: 20150317
  7. CEFTRIAXONUM [Concomitant]
     Indication: PLEURISY
     Route: 042
     Dates: start: 20150703, end: 20150712
  8. IBRUTINIB [Suspect]
     Active Substance: IBRUTINIB
     Indication: MANTLE CELL LYMPHOMA
     Route: 048
     Dates: start: 20150625, end: 20150816

REACTIONS (5)
  - Haematemesis [Recovered/Resolved]
  - Pleurisy [Recovered/Resolved]
  - Pneumothorax [Recovered/Resolved]
  - Pleurisy [Recovered/Resolved with Sequelae]
  - Pleurisy [Recovered/Resolved]

NARRATIVE: CASE EVENT DATE: 20150708
